FAERS Safety Report 25116924 (Version 2)
Quarter: 2025Q3

REPORT INFORMATION
  Report Type: Report from Study
  Country: US (occurrence: US)
  Receive Date: 20250325
  Receipt Date: 20250802
  Transmission Date: 20251020
  Serious: Yes (Other)
  Sender: ALEXION PHARMACEUTICALS
  Company Number: US-ASTRAZENECA-202503USA016074US

PATIENT
  Age: 48 Year
  Sex: Female

DRUGS (1)
  1. STRENSIQ [Suspect]
     Active Substance: ASFOTASE ALFA
     Indication: Phosphorus metabolism disorder
     Dosage: 1 MILLIGRAM/KILOGRAM, SIX TIMES/WEEK
     Route: 065

REACTIONS (19)
  - Impaired gastric emptying [Unknown]
  - Dysstasia [Unknown]
  - Muscular weakness [Unknown]
  - Arthralgia [Unknown]
  - Arthropathy [Unknown]
  - Patellofemoral pain syndrome [Unknown]
  - Hypoaesthesia [Unknown]
  - Paraesthesia [Unknown]
  - Pain [Unknown]
  - Dental restoration failure [Unknown]
  - Floating patella [Unknown]
  - Back pain [Unknown]
  - Abdominal pain [Unknown]
  - Nausea [Unknown]
  - Vomiting [Unknown]
  - Diarrhoea [Unknown]
  - Dysphagia [Unknown]
  - Fatigue [Unknown]
  - Sleep disorder [Unknown]
